FAERS Safety Report 6814670-1 (Version None)
Quarter: 2010Q2

REPORT INFORMATION
  Report Type: 
  Country: None (occurrence: None)
  Receive Date: 20100628
  Receipt Date: 20100611
  Transmission Date: 20101027
  Serious: Yes (Other)
  Sender: FDA-Public Use
  Company Number: AUR-APL-2010-01578

PATIENT
  Age: 30 Year
  Sex: Female
  Weight: 93.42 kg

DRUGS (8)
  1. METFORMIN HCL [Suspect]
     Dosage: ORAL
     Route: 048
     Dates: end: 20090814
  2. GEODON [Suspect]
     Indication: BIPOLAR DISORDER
     Dosage: 80MG, DAILY, ORAL
     Route: 048
  3. GEODON [Suspect]
     Indication: BIPOLAR DISORDER
     Dosage: 40MG, DAILY, ORAL
     Route: 048
     Dates: start: 20090731, end: 20090814
  4. MONTEKULAST SODIUM [Suspect]
     Dates: end: 20090814
  5. PROZAC [Suspect]
     Indication: BIPOLAR DISORDER
     Dosage: 20 MG, DAILY,
     Dates: start: 20090821
  6. TRAZODONE HYDROCHLORIDE [Concomitant]
  7. TOPAMAX [Concomitant]
  8. CYMBALTA [Concomitant]

REACTIONS (5)
  - DRUG EXPOSURE DURING PREGNANCY [None]
  - PREGNANCY [None]
  - PREMATURE BABY [None]
  - TOBACCO USER [None]
  - URINARY TRACT INFECTION [None]
